FAERS Safety Report 9738463 (Version 4)
Quarter: 2014Q2

REPORT INFORMATION
  Report Type: Report from Study
  Country: US (occurrence: US)
  Receive Date: 20131208
  Receipt Date: 20140613
  Transmission Date: 20141212
  Serious: Yes (Other)
  Sender: FDA-Public Use
  Company Number: US-VERTEX PHARMACEUTICALS INC-2013-011577

PATIENT
  Age: 17 Year
  Sex: Male
  Weight: 63 kg

DRUGS (12)
  1. VX-809 FDC [Suspect]
     Indication: CYSTIC FIBROSIS
     Dosage: 400 MG, Q12HR
     Route: 048
     Dates: start: 20130905, end: 20140224
  2. VX-770 FDC [Suspect]
     Indication: CYSTIC FIBROSIS
     Dosage: 250 MG, Q12HR
     Route: 048
     Dates: start: 20130905, end: 20140224
  3. TOBI [Concomitant]
     Indication: BACTERIAL DISEASE CARRIER
     Dosage: 300 MG, BID, 28 DAYS ON/OFF ALTERNATING WITH CAYSTON
     Route: 055
  4. CAYSTON [Concomitant]
     Indication: BACTERIAL DISEASE CARRIER
     Dosage: 75 MG, TID, 28 DAYS ON/OFF ALTERNATING WITH TOBI
     Route: 055
  5. PULMOZYME [Concomitant]
     Dosage: 2.5 ML, QD
     Route: 055
  6. HYPERTONIC SALINE SOLUTION [Concomitant]
     Dosage: UNK, BID
     Route: 055
  7. ALBUTEROL [Concomitant]
     Dosage: UNK, BID
     Route: 055
  8. ACTIGALL [Concomitant]
     Dosage: 900 MG, QD
     Route: 048
  9. AQUADEKS [Concomitant]
     Dosage: 2 DF, QD
     Route: 048
  10. CREON [Concomitant]
     Dosage: 4 CAPSULES W/MEALS, 3 CAPSULES WITH SNACKS
     Route: 048
  11. PHYTONADIONE [Concomitant]
     Dosage: 20 MG, QD
     Route: 048
  12. VITAMIN A [Concomitant]
     Dosage: 10000 IU, QD
     Route: 048

REACTIONS (1)
  - Haemoptysis [Recovered/Resolved]
